FAERS Safety Report 23467180 (Version 3)
Quarter: 2024Q1

REPORT INFORMATION
  Report Type: Report from Study
  Country: CL (occurrence: CL)
  Receive Date: 20240201
  Receipt Date: 20240311
  Transmission Date: 20240410
  Serious: Yes (Other)
  Sender: FDA-Public Use
  Company Number: CL-JNJFOC-20231217258

PATIENT
  Age: 61 Year
  Sex: Female

DRUGS (2)
  1. SIMPONI [Suspect]
     Active Substance: GOLIMUMAB
     Indication: Colitis ulcerative
     Dosage: LAST DATE OF ADHERENCE REGISTERED 30-OCT-2023.
     Route: 058
     Dates: start: 20230807, end: 20231030
  2. IMATINIB [Suspect]
     Active Substance: IMATINIB

REACTIONS (6)
  - Liver disorder [Unknown]
  - Cushing^s syndrome [Recovering/Resolving]
  - Gastric neoplasm [Recovering/Resolving]
  - Colon cancer metastatic [Recovering/Resolving]
  - Gastrointestinal stromal tumour [Recovering/Resolving]
  - Off label use [Unknown]

NARRATIVE: CASE EVENT DATE: 20230807
